FAERS Safety Report 16647796 (Version 4)
Quarter: 2019Q4

REPORT INFORMATION
  Report Type: Report from Study
  Country: US (occurrence: US)
  Receive Date: 20190730
  Receipt Date: 20191217
  Transmission Date: 20200122
  Serious: Yes (Hospitalization, Other)
  Sender: FDA-Public Use
  Company Number: US-TESAROUBC-2018-TSO1986-US

PATIENT
  Age: 66 Year
  Sex: Female

DRUGS (6)
  1. MAGNESIUM [Concomitant]
     Active Substance: MAGNESIUM
     Indication: PRODUCT USED FOR UNKNOWN INDICATION
     Dosage: UNK
     Route: 042
  2. PEPCID                             /00305201/ [Concomitant]
     Active Substance: ALUMINUM HYDROXIDE\MAGNESIUM CARBONATE
     Indication: PRODUCT USED FOR UNKNOWN INDICATION
     Dosage: UNK
  3. NIRAPARIB [Suspect]
     Active Substance: NIRAPARIB
     Dosage: 300 MG, QD
     Route: 048
     Dates: start: 201812
  4. NIRAPARIB [Suspect]
     Active Substance: NIRAPARIB
     Dosage: 300 MG, QD
     Route: 048
     Dates: start: 201812
  5. NIRAPARIB [Suspect]
     Active Substance: NIRAPARIB
     Indication: OVARIAN CANCER
     Dosage: 300 MG, QPM WITH FOOD
     Route: 048
     Dates: start: 20181030
  6. VOLTAREN [Concomitant]
     Active Substance: DICLOFENAC SODIUM
     Indication: PRODUCT USED FOR UNKNOWN INDICATION
     Dosage: UNK
     Route: 061

REACTIONS (26)
  - Pyrexia [Recovered/Resolved]
  - Disease progression [Unknown]
  - Glomerular filtration rate decreased [Unknown]
  - Feeling abnormal [Unknown]
  - Back pain [Unknown]
  - Headache [Not Recovered/Not Resolved]
  - Blood pressure increased [Recovering/Resolving]
  - Dehydration [Not Recovered/Not Resolved]
  - Upper respiratory tract infection [Unknown]
  - Chest pain [Unknown]
  - Dyspepsia [Not Recovered/Not Resolved]
  - Dizziness [Unknown]
  - Eructation [Unknown]
  - Intentional dose omission [Unknown]
  - Pulmonary oedema [Recovered/Resolved]
  - Vitamin B12 decreased [Unknown]
  - Inflammation [Unknown]
  - Fatigue [Recovering/Resolving]
  - Red blood cell count decreased [Unknown]
  - Macrocytosis [Unknown]
  - Renal function test abnormal [Unknown]
  - Blood creatinine increased [Unknown]
  - Nausea [Recovered/Resolved]
  - Heart rate increased [Recovering/Resolving]
  - Insomnia [Recovered/Resolved]
  - Constipation [Recovering/Resolving]

NARRATIVE: CASE EVENT DATE: 2018
